FAERS Safety Report 16831158 (Version 3)
Quarter: 2019Q4

REPORT INFORMATION
  Report Type: Spontaneous
  Country: US (occurrence: US)
  Receive Date: 20190920
  Receipt Date: 20191115
  Transmission Date: 20200122
  Serious: No
  Sender: FDA-Public Use
  Company Number: US-SHIRE-US201930732

PATIENT
  Sex: Female

DRUGS (3)
  1. NATPARA (PARATHYROID HORMONE) [Suspect]
     Active Substance: PARATHYROID HORMONE
     Indication: POST PROCEDURAL HYPOPARATHYROIDISM
     Dosage: UNK
     Route: 065
     Dates: start: 20151104
  2. NATPARA (PARATHYROID HORMONE) [Suspect]
     Active Substance: PARATHYROID HORMONE
     Dosage: 75 MICROGRAM, 1X/DAY:QD
     Route: 058
     Dates: start: 201506
  3. NATPARA (PARATHYROID HORMONE) [Suspect]
     Active Substance: PARATHYROID HORMONE
     Dosage: 75 MICROGRAM, 1X/DAY:QD
     Route: 058
     Dates: start: 201909

REACTIONS (12)
  - Blood calcium decreased [Unknown]
  - Hypoaesthesia [Unknown]
  - Muscle twitching [Unknown]
  - Recalled product [Unknown]
  - Constipation [Unknown]
  - Fatigue [Unknown]
  - Visual impairment [Unknown]
  - Headache [Unknown]
  - Renal disorder [Unknown]
  - Dry eye [Unknown]
  - Sleep disorder [Unknown]
  - Nausea [Unknown]
